FAERS Safety Report 5048422-2 (Version None)
Quarter: 2006Q3

REPORT INFORMATION
  Report Type: 
  Country: None (occurrence: None)
  Receive Date: 20060705
  Receipt Date: 20060623
  Transmission Date: 20061208
  Serious: Yes (Other)
  Sender: FDA-Public Use
  Company Number: 224625

PATIENT
  Age: 40 Year
  Sex: Female

DRUGS (3)
  1. XOLAIR [Suspect]
     Dosage: 150 MG,
     Dates: start: 20050301, end: 20060301
  2. PREDNISONE TAB [Concomitant]
  3. ADVAIR DISKUS 100/50 [Concomitant]

REACTIONS (4)
  - HEAD DISCOMFORT [None]
  - HYPOAESTHESIA [None]
  - MIDDLE INSOMNIA [None]
  - PAIN IN EXTREMITY [None]
